FAERS Safety Report 14020259 (Version 3)
Quarter: 2017Q4

REPORT INFORMATION
  Report Type: Report from Study
  Country: US (occurrence: US)
  Receive Date: 20170928
  Receipt Date: 20171122
  Transmission Date: 20180321
  Serious: Yes (Hospitalization)
  Sender: FDA-Public Use
  Company Number: US-JNJFOC-20170806665

PATIENT
  Age: 62 Year
  Sex: Male

DRUGS (28)
  1. PREDNISONE. [Suspect]
     Active Substance: PREDNISONE
     Indication: PRODUCT USED FOR UNKNOWN INDICATION
     Route: 065
  2. POTASSIUM GLUCONATE [Concomitant]
     Active Substance: POTASSIUM GLUCONATE
  3. PREDNISONE. [Suspect]
     Active Substance: PREDNISONE
     Indication: PRODUCT USED FOR UNKNOWN INDICATION
     Route: 065
  4. FENOFIBRATE. [Concomitant]
     Active Substance: FENOFIBRATE
  5. PROTONIX [Concomitant]
     Active Substance: PANTOPRAZOLE SODIUM
  6. CARAFATE [Concomitant]
     Active Substance: SUCRALFATE
  7. RANEXA [Concomitant]
     Active Substance: RANOLAZINE
  8. ALLOPURINOL. [Concomitant]
     Active Substance: ALLOPURINOL
  9. BENZONATATE. [Concomitant]
     Active Substance: BENZONATATE
  10. GAZYVA [Concomitant]
     Active Substance: OBINUTUZUMAB
  11. ONDANSETRON [Concomitant]
     Active Substance: ONDANSETRON
  12. PANTOPRAZOLE [Concomitant]
     Active Substance: PANTOPRAZOLE
  13. IMBRUVICA [Suspect]
     Active Substance: IBRUTINIB
     Indication: CHRONIC LYMPHOCYTIC LEUKAEMIA
     Route: 048
     Dates: start: 20170726, end: 2017
  14. TOPROL XL [Concomitant]
     Active Substance: METOPROLOL SUCCINATE
  15. VALACYCLOVIR HCL [Concomitant]
     Active Substance: VALACYCLOVIR HYDROCHLORIDE
  16. CITALOPRAM [Concomitant]
     Active Substance: CITALOPRAM HYDROBROMIDE
  17. HUMALOG [Concomitant]
     Active Substance: INSULIN LISPRO
  18. ACYCLOVIR. [Concomitant]
     Active Substance: ACYCLOVIR
  19. FOLIC ACID. [Concomitant]
     Active Substance: FOLIC ACID
  20. POTASSIUM [Concomitant]
     Active Substance: POTASSIUM
  21. LISINOPRIL. [Concomitant]
     Active Substance: LISINOPRIL
  22. VENTOLIN HFA [Concomitant]
     Active Substance: ALBUTEROL SULFATE
  23. PLAVIX [Concomitant]
     Active Substance: CLOPIDOGREL BISULFATE
  24. GABAPENTIN. [Concomitant]
     Active Substance: GABAPENTIN
  25. ZOCOR [Concomitant]
     Active Substance: SIMVASTATIN
  26. VENTOLIN [Concomitant]
     Active Substance: ALBUTEROL SULFATE
  27. IMBRUVICA [Suspect]
     Active Substance: IBRUTINIB
     Indication: CHRONIC LYMPHOCYTIC LEUKAEMIA
     Route: 048
     Dates: start: 2017
  28. ASPIRIN. [Concomitant]
     Active Substance: ASPIRIN

REACTIONS (9)
  - Herpes zoster [Not Recovered/Not Resolved]
  - Fatigue [Unknown]
  - Off label use [Unknown]
  - Platelet count decreased [Unknown]
  - Diabetes mellitus [Not Recovered/Not Resolved]
  - Inappropriate schedule of drug administration [Unknown]
  - White blood cell count decreased [Unknown]
  - Sinus disorder [Unknown]
  - Incorrect dose administered [Unknown]

NARRATIVE: CASE EVENT DATE: 2017
